FAERS Safety Report 20279308 (Version 1)
Quarter: 2021Q4

REPORT INFORMATION
  Report Type: Spontaneous
  Country: US (occurrence: None)
  Receive Date: 20211230
  Receipt Date: 20211230
  Transmission Date: 20220303
  Serious: Yes (Hospitalization, Disabling)
  Sender: FDA-Public Use
  Company Number: None

PATIENT
  Age: 70 Year
  Sex: Male

DRUGS (7)
  1. TOLVAPTAN [Suspect]
     Active Substance: TOLVAPTAN
     Indication: Hyponatraemia
     Dosage: FREQUENCY : DAILY;?
     Route: 048
     Dates: start: 20211215
  2. ALBUTEROL [Concomitant]
     Active Substance: ALBUTEROL
  3. ATORVASTATIN [Concomitant]
     Active Substance: ATORVASTATIN
  4. OMEPRAZOLE [Concomitant]
     Active Substance: OMEPRAZOLE
  5. TRELEGY ELLIPTA [Concomitant]
     Active Substance: FLUTICASONE FUROATE\UMECLIDINIUM BROMIDE\VILANTEROL TRIFENATATE
  6. POTASSIUM [Concomitant]
     Active Substance: POTASSIUM
  7. ASPIRIN [Concomitant]
     Active Substance: ASPIRIN

REACTIONS (1)
  - Hospitalisation [None]

NARRATIVE: CASE EVENT DATE: 20211226
